FAERS Safety Report 11298251 (Version 1)
Quarter: 2015Q3

REPORT INFORMATION
  Report Type: Spontaneous
  Country: US (occurrence: US)
  Receive Date: 20150722
  Receipt Date: 20150722
  Transmission Date: 20151125
  Serious: Yes (Other)
  Sender: FDA-Public Use
  Company Number: US-ELI_LILLY_AND_COMPANY-US201106003253

PATIENT
  Age: 57 Year
  Sex: Male
  Weight: 82 kg

DRUGS (7)
  1. ASPIRIN. [Concomitant]
     Active Substance: ASPIRIN
     Indication: ACUTE MYOCARDIAL INFARCTION
     Dosage: UNK
     Dates: start: 201105, end: 201105
  2. ANGIOMAX [Concomitant]
     Active Substance: BIVALIRUDIN
     Indication: PERCUTANEOUS CORONARY INTERVENTION
     Dosage: UNK, UNKNOWN
     Route: 065
     Dates: start: 201105, end: 201105
  3. HEPARIN [Concomitant]
     Active Substance: HEPARIN SODIUM
     Indication: PERCUTANEOUS CORONARY INTERVENTION
     Dosage: UNK
     Dates: start: 201105, end: 201105
  4. EFFIENT [Suspect]
     Active Substance: PRASUGREL HYDROCHLORIDE
     Indication: ACUTE MYOCARDIAL INFARCTION
     Dosage: 60 MG, ONCE
     Dates: start: 20110603, end: 20110603
  5. INTEGRILIN [Concomitant]
     Active Substance: EPTIFIBATIDE
     Dosage: UNK, UNKNOWN
     Route: 065
  6. BIVALIRUDIN. [Concomitant]
     Active Substance: BIVALIRUDIN
     Dosage: UNK, UNKNOWN
     Route: 065
  7. PLAVIX [Concomitant]
     Active Substance: CLOPIDOGREL BISULFATE
     Dosage: UNK, UNKNOWN
     Route: 065

REACTIONS (1)
  - Haemorrhage intracranial [Recovering/Resolving]

NARRATIVE: CASE EVENT DATE: 20110609
